FAERS Safety Report 21091893 (Version 1)
Quarter: 2022Q3

REPORT INFORMATION
  Report Type: Report from Study
  Country: KR (occurrence: KR)
  Receive Date: 20220717
  Receipt Date: 20220717
  Transmission Date: 20221026
  Serious: Yes (Other)
  Sender: FDA-Public Use
  Company Number: KR-NOVARTISPH-NVSC2021KR271713

PATIENT
  Age: 59 Year
  Sex: Female

DRUGS (20)
  1. KISQALI [Suspect]
     Active Substance: RIBOCICLIB
     Indication: Breast cancer metastatic
     Dosage: 600 MG, QD
     Route: 048
     Dates: start: 20210823, end: 20210922
  2. KISQALI [Suspect]
     Active Substance: RIBOCICLIB
     Dosage: 400 MG, QD
     Route: 048
     Dates: start: 20210923
  3. VIMOVO [Concomitant]
     Active Substance: ESOMEPRAZOLE MAGNESIUM\NAPROXEN
     Indication: Prophylaxis
     Dosage: 40 MG PER DAY
     Route: 048
     Dates: start: 20210823, end: 20210906
  4. ACETAMINOPHEN\TRAMADOL HYDROCHLORIDE [Concomitant]
     Active Substance: ACETAMINOPHEN\TRAMADOL HYDROCHLORIDE
     Indication: Prophylaxis
     Dosage: 2 DOSAGE FORM, PER DAY
     Route: 048
     Dates: start: 20210823, end: 20210906
  5. CALCIUM CARBONATE\CHOLECALCIFEROL [Concomitant]
     Active Substance: CALCIUM CARBONATE\CHOLECALCIFEROL
     Indication: Prophylaxis
     Dosage: 1 DOSAGE FORM, QD
     Route: 048
     Dates: start: 20220113
  6. FASLODEX [Concomitant]
     Active Substance: FULVESTRANT
     Indication: Breast cancer
     Dosage: 500 MG, PER DAY (ENDOCRINE THERAPY)
     Route: 030
     Dates: start: 20210823, end: 20210823
  7. FASLODEX [Concomitant]
     Active Substance: FULVESTRANT
     Dosage: 500 MG, PER DAY
     Route: 030
     Dates: start: 20210906, end: 20210906
  8. FASLODEX [Concomitant]
     Active Substance: FULVESTRANT
     Dosage: 500 MG, PER DAY
     Route: 030
     Dates: start: 20210923, end: 20210923
  9. FASLODEX [Concomitant]
     Active Substance: FULVESTRANT
     Dosage: 500 MG, PER DAY
     Route: 030
     Dates: start: 20211021, end: 20211021
  10. FASLODEX [Concomitant]
     Active Substance: FULVESTRANT
     Dosage: 500 MG, PER DAY
     Route: 030
     Dates: start: 20211108, end: 20211108
  11. FASLODEX [Concomitant]
     Active Substance: FULVESTRANT
     Dosage: 500 MG, PER DAY
     Route: 030
     Dates: start: 20211216, end: 20211216
  12. FASLODEX [Concomitant]
     Active Substance: FULVESTRANT
     Dosage: 500 MG, PER DAY
     Route: 030
     Dates: start: 20220113, end: 20220113
  13. FASLODEX [Concomitant]
     Active Substance: FULVESTRANT
     Dosage: 500 MG, PER DAY
     Route: 030
     Dates: start: 20220214, end: 20220214
  14. XGEVA [Concomitant]
     Active Substance: DENOSUMAB
     Indication: Metastases to bone
     Dosage: 120 MG, PER DAY
     Route: 058
     Dates: start: 20210823, end: 20210823
  15. XGEVA [Concomitant]
     Active Substance: DENOSUMAB
     Dosage: 120 MG, PER DAY
     Route: 058
     Dates: start: 20210923, end: 20210923
  16. XGEVA [Concomitant]
     Active Substance: DENOSUMAB
     Dosage: 120 MG, PER DAY
     Route: 058
     Dates: start: 20211021, end: 20211021
  17. XGEVA [Concomitant]
     Active Substance: DENOSUMAB
     Dosage: 120 MG, PER DAY
     Route: 058
     Dates: start: 20211108, end: 20211108
  18. XGEVA [Concomitant]
     Active Substance: DENOSUMAB
     Dosage: 120 MG, PER DAY
     Route: 058
     Dates: start: 20211216, end: 20211216
  19. XGEVA [Concomitant]
     Active Substance: DENOSUMAB
     Dosage: 120 MG, PER DAY
     Route: 058
     Dates: start: 20220113, end: 20220113
  20. XGEVA [Concomitant]
     Active Substance: DENOSUMAB
     Dosage: 120 MG, PER DAY
     Route: 058
     Dates: start: 20220214, end: 20220214

REACTIONS (2)
  - Hepatitis [Recovered/Resolved]
  - Neutrophil count decreased [Recovered/Resolved]

NARRATIVE: CASE EVENT DATE: 20210923
